FAERS Safety Report 6662658-6 (Version None)
Quarter: 2010Q2

REPORT INFORMATION
  Report Type: 
  Country: None (occurrence: None)
  Receive Date: 20100401
  Receipt Date: 20100326
  Transmission Date: 20101027
  Serious: Yes (Hospitalization)
  Sender: FDA-Public Use
  Company Number: US-BIOGENIDEC-2009BI038076

PATIENT
  Age: 38 Year
  Sex: Female

DRUGS (2)
  1. AVONEX [Suspect]
     Indication: MULTIPLE SCLEROSIS
     Route: 030
     Dates: start: 20030303
  2. AVONEX [Suspect]
     Route: 030
     Dates: start: 20091204, end: 20091218

REACTIONS (2)
  - MEMORY IMPAIRMENT [None]
  - WEIGHT DECREASED [None]
